FAERS Safety Report 5583329-3 (Version None)
Quarter: 2008Q1

REPORT INFORMATION
  Report Type: 
  Country: None (occurrence: None)
  Receive Date: 20080107
  Receipt Date: 20071221
  Transmission Date: 20080703
  Serious: Yes (Hospitalization, Other)
  Sender: FDA-Public Use
  Company Number: FR-GILEAD-2008-0014802

PATIENT
  Sex: Female
  Weight: 58 kg

DRUGS (7)
  1. AMBISOME [Suspect]
     Indication: HISTOPLASMOSIS
     Route: 042
     Dates: start: 20071031, end: 20071115
  2. TRUVADA [Suspect]
     Indication: HIV INFECTION
     Route: 048
     Dates: start: 20071023, end: 20071101
  3. BACTRIM [Suspect]
     Route: 048
     Dates: start: 20071005, end: 20071119
  4. NORVIR [Concomitant]
     Indication: HIV INFECTION
     Dates: start: 20071023, end: 20071101
  5. REYATAZ [Concomitant]
     Indication: HIV INFECTION
     Dates: start: 20071023, end: 20071101
  6. SPECIAFOLDINE [Concomitant]
     Dates: start: 20071005, end: 20071119
  7. TRIFLUCAN [Concomitant]
     Dates: start: 20071010, end: 20071030

REACTIONS (4)
  - APLASIA [None]
  - HEPATIC ENZYME INCREASED [None]
  - IMMUNE RECONSTITUTION SYNDROME [None]
  - PANCYTOPENIA [None]
